FAERS Safety Report 8799017 (Version 1)
Quarter: 2012Q4

REPORT INFORMATION
  Report Type: 
  Country: SE (occurrence: SE)
  Receive Date: 20120920
  Receipt Date: 20120920
  Transmission Date: 20130627
  Serious: Yes (Hospitalization)
  Sender: FDA-Public Use
  Company Number: SE-TEVA-358706ISR

PATIENT
  Age: 69 Year
  Sex: Male

DRUGS (11)
  1. MODIODAL [Suspect]
     Dates: end: 201206
  2. ENALAPRIL [Suspect]
     Dates: end: 201206
  3. LEVEMIR [Concomitant]
  4. OMEPRAZOLE [Concomitant]
  5. COZAAR [Concomitant]
     Route: 048
  6. JANUVIA 100 MG [Concomitant]
  7. BEHEPAN [Concomitant]
  8. CITODON [Concomitant]
  9. ALVEDON FORTE [Concomitant]
  10. PREDNISOLON [Concomitant]
  11. NOVORAPID [Concomitant]

REACTIONS (2)
  - Neutropenia [Recovering/Resolving]
  - Pancytopenia [Recovering/Resolving]
